FAERS Safety Report 7675184-2 (Version None)
Quarter: 2011Q3

REPORT INFORMATION
  Report Type: 
  Country: None (occurrence: None)
  Receive Date: 20110810
  Receipt Date: 20110810
  Transmission Date: 20111222
  Serious: Yes (Other)
  Sender: FDA-Public Use
  Company Number: None

PATIENT
  Sex: Female
  Weight: 58.967 kg

DRUGS (1)
  1. ZYCLARA [Suspect]
     Dosage: 1 APPLICATION
     Route: 061
     Dates: start: 20110609, end: 20110718

REACTIONS (4)
  - LUPUS-LIKE SYNDROME [None]
  - RASH ERYTHEMATOUS [None]
  - RASH GENERALISED [None]
  - RASH PRURITIC [None]
